FAERS Safety Report 4338574-1 (Version None)
Quarter: 2004Q2

REPORT INFORMATION
  Report Type: 
  Country: None (occurrence: None)
  Receive Date: 20040407
  Receipt Date: 20040402
  Transmission Date: 20050107
  Serious: Yes (Hospitalization)
  Sender: FDA-Public Use
  Company Number: OMPQ-GE-0404S-0231

PATIENT
  Age: 62 Year
  Sex: Female

DRUGS (1)
  1. ACCUPAQUE (IOHEXOL) [Suspect]
     Indication: CORONARY ARTERY DISEASE
     Dosage: 110 ML, SINGLE DOSE, I.V.
     Route: 042
     Dates: start: 20040309, end: 20040309

REACTIONS (1)
  - TOXIC EPIDERMAL NECROLYSIS [None]
